FAERS Safety Report 6566439-3 (Version None)
Quarter: 2010Q1

REPORT INFORMATION
  Report Type: 
  Country: None (occurrence: None)
  Receive Date: 20100202
  Receipt Date: 20100119
  Transmission Date: 20100710
  Serious: Yes (Hospitalization)
  Sender: FDA-Public Use
  Company Number: PHHY2010FR01069

PATIENT
  Age: 46 Year
  Sex: Female

DRUGS (5)
  1. GLEEVEC [Suspect]
     Indication: CHRONIC MYELOID LEUKAEMIA
     Dosage: 400 MG DAILY
     Route: 048
  2. ZOLMITRIPTAN [Concomitant]
     Dosage: 2 DF, UNK
     Route: 048
  3. PARACETAMOL [Concomitant]
     Dosage: 6 G, UNK
  4. CAFFEINE [Concomitant]
  5. PROPOFAN [Concomitant]

REACTIONS (13)
  - ALANINE AMINOTRANSFERASE INCREASED [None]
  - ANTINUCLEAR ANTIBODY POSITIVE [None]
  - ASPARTATE AMINOTRANSFERASE INCREASED [None]
  - ASTHENIA [None]
  - AUTOIMMUNE HEPATITIS [None]
  - CHOLESTASIS [None]
  - DECREASED APPETITE [None]
  - EFFUSION [None]
  - HEPATIC NECROSIS [None]
  - HEPATITIS [None]
  - HEPATOCELLULAR INJURY [None]
  - HYPERGAMMAGLOBULINAEMIA [None]
  - NAUSEA [None]
